FAERS Safety Report 7493771-1 (Version None)
Quarter: 2011Q2

REPORT INFORMATION
  Report Type: 
  Country: None (occurrence: None)
  Receive Date: 20110520
  Receipt Date: 20110318
  Transmission Date: 20111010
  Serious: No
  Sender: FDA-Public Use
  Company Number: US-ASTRAZENECA-2011SE15486

PATIENT
  Age: 85 Year
  Sex: Female

DRUGS (7)
  1. DARVOCET [Concomitant]
     Indication: PAIN
  2. TESSALON [Concomitant]
  3. TRIAMTERENE [Concomitant]
     Indication: OEDEMA
  4. ATENOLOL [Concomitant]
     Indication: HYPERTENSION
  5. VIMOVO [Suspect]
     Indication: PAIN
     Dosage: 500/20 MG DAILY
     Route: 048
     Dates: start: 20110308
  6. AMITIZA [Concomitant]
     Indication: CONSTIPATION
  7. SIMVASTATIN [Concomitant]
     Indication: HYPERCHOLESTEROLAEMIA

REACTIONS (2)
  - CONSTIPATION [None]
  - DRUG DOSE OMISSION [None]
